FAERS Safety Report 14598589 (Version 3)
Quarter: 2018Q2

REPORT INFORMATION
  Report Type: Spontaneous
  Country: US (occurrence: US)
  Receive Date: 20180305
  Receipt Date: 20180508
  Transmission Date: 20180711
  Serious: Yes (Hospitalization)
  Sender: FDA-Public Use
  Company Number: US-BIOGEN-2018BI00531961

PATIENT
  Sex: Male

DRUGS (4)
  1. SPINRAZA [Suspect]
     Active Substance: NUSINERSEN
     Indication: SPINAL MUSCULAR ATROPHY
     Route: 065
     Dates: start: 20170201, end: 20171206
  2. DIASTAT [Concomitant]
     Active Substance: DIAZEPAM
     Indication: SEIZURE
     Route: 065
  3. KEPPRA [Concomitant]
     Active Substance: LEVETIRACETAM
     Indication: PRODUCT USED FOR UNKNOWN INDICATION
     Route: 065
  4. SPINRAZA [Suspect]
     Active Substance: NUSINERSEN
     Route: 065
     Dates: start: 20180411

REACTIONS (8)
  - Diarrhoea [Unknown]
  - Pyrexia [Unknown]
  - Lethargy [Unknown]
  - Blood electrolytes decreased [Unknown]
  - Unresponsive to stimuli [Unknown]
  - Functional gastrointestinal disorder [Unknown]
  - Heart rate increased [Unknown]
  - Rhinovirus infection [Not Recovered/Not Resolved]
